FAERS Safety Report 5372738-3 (Version None)
Quarter: 2007Q2

REPORT INFORMATION
  Report Type: 
  Country: None (occurrence: None)
  Receive Date: 20070627
  Receipt Date: 20070614
  Transmission Date: 20071010
  Serious: No
  Sender: FDA-Public Use
  Company Number: PFIZER INC-2007027757

PATIENT
  Sex: Female

DRUGS (2)
  1. VIRACEPT [Suspect]
     Indication: HIV INFECTION
     Route: 048
  2. COMBIVIR [Concomitant]

REACTIONS (1)
  - NO ADVERSE EFFECT [None]
